FAERS Safety Report 25080178 (Version 1)
Quarter: 2025Q1

REPORT INFORMATION
  Report Type: Spontaneous
  Country: CN (occurrence: CN)
  Receive Date: 20250314
  Receipt Date: 20250314
  Transmission Date: 20250408
  Serious: Yes (Other)
  Sender: MERCK SHARP & DOHME LLC
  Company Number: CN-009507513-2263875

PATIENT
  Age: 98 Year
  Sex: Male
  Weight: 65 kg

DRUGS (1)
  1. CILASTATIN SODIUM\IMIPENEM [Suspect]
     Active Substance: CILASTATIN SODIUM\IMIPENEM
     Indication: Pneumonia
     Route: 041
     Dates: start: 20250114, end: 20250122

REACTIONS (6)
  - Generalised tonic-clonic seizure [Recovering/Resolving]
  - Pneumonia [Unknown]
  - Hypertension [Unknown]
  - Coronary artery disease [Unknown]
  - Cerebrovascular insufficiency [Unknown]
  - Cerebellar haemorrhage [Unknown]

NARRATIVE: CASE EVENT DATE: 20250101
